FAERS Safety Report 7555104-1 (Version None)
Quarter: 2011Q2

REPORT INFORMATION
  Report Type: 
  Country: None (occurrence: None)
  Receive Date: 20110617
  Receipt Date: 20110607
  Transmission Date: 20111010
  Serious: Yes (Other)
  Sender: FDA-Public Use
  Company Number: CH-ASTRAZENECA-2011SE35291

PATIENT
  Age: 49 Year
  Sex: Male

DRUGS (11)
  1. DEXAMETHASONE [Suspect]
     Route: 048
     Dates: start: 20110315, end: 20110323
  2. LYRICA [Concomitant]
  3. TEMGESIC [Concomitant]
  4. ACETAMINOPHEN [Suspect]
     Route: 048
     Dates: start: 20110309, end: 20110328
  5. REMERON [Suspect]
     Route: 048
     Dates: start: 20110321, end: 20110328
  6. IBRUPROFEN [Suspect]
     Route: 048
     Dates: start: 20110309, end: 20110328
  7. BOURDAINE [Concomitant]
  8. DEXAMETHASONE [Suspect]
     Route: 048
     Dates: start: 20110324
  9. ZOLPIDEM [Concomitant]
  10. NEXIUM [Suspect]
     Route: 048
     Dates: start: 20110309, end: 20110328
  11. ENOXAPARIN SODIUM [Concomitant]

REACTIONS (1)
  - HEPATOCELLULAR INJURY [None]
